FAERS Safety Report 15905791 (Version 1)
Quarter: 2019Q1

REPORT INFORMATION
  Report Type: Spontaneous
  Country: US (occurrence: US)
  Receive Date: 20190202
  Receipt Date: 20190202
  Transmission Date: 20190417
  Serious: Yes (Other)
  Sender: FDA-Public Use
  Company Number: None

PATIENT
  Age: 27 Year
  Sex: Female
  Weight: 85.5 kg

DRUGS (9)
  1. LEVOTHYROXINE. [Concomitant]
     Active Substance: LEVOTHYROXINE
  2. MULTIVITAMIN POWDER [Concomitant]
  3. VITAMIN D3 [Concomitant]
     Active Substance: CHOLECALCIFEROL
  4. VITAMIN B COMPLEX [Concomitant]
     Active Substance: CYANOCOBALAMIN\DEXPANTHENOL\NIACINAMIDE\PYRIDOXINE HYDROCHLORIDE\RIBOFLAVIN 5^-PHOSPHATE SODIUM\THIAMINE HYDROCHLORIDE\VITAMIN B COMPLEX
  5. PROBIOTIC [Concomitant]
     Active Substance: PROBIOTICS NOS
  6. DIGESTIVE ENZYMES [Concomitant]
     Active Substance: UNSPECIFIED INGREDIENT
  7. MAGNESIUM GLYCINATE [Concomitant]
     Active Substance: MAGNESIUM GLYCINATE
  8. ZICAM (HOMEOPATHICS) [Suspect]
     Active Substance: HOMEOPATHICS
     Indication: SINUSITIS
     Dosage: ?          OTHER STRENGTH:HOMEOPATHIC ^X^;QUANTITY:2 SPRAY(S);OTHER FREQUENCY:EVERY 3 HOURS;OTHER ROUTE:INTRANASAL SPRAY?
     Dates: start: 20190201, end: 20190201
  9. TRIIODOTHYRONINE [Concomitant]
     Active Substance: LIOTHYRONINE SODIUM

REACTIONS (1)
  - Dysgeusia [None]

NARRATIVE: CASE EVENT DATE: 20190201
